FAERS Safety Report 14373315 (Version 1)
Quarter: 2018Q1

REPORT INFORMATION
  Report Type: Spontaneous
  Country: IT (occurrence: IT)
  Receive Date: 20180110
  Receipt Date: 20180110
  Transmission Date: 20180509
  Serious: Yes (Hospitalization, Other)
  Sender: FDA-Public Use
  Company Number: IT-MYLANLABS-2018M1001218

PATIENT
  Age: 79 Year
  Sex: Male

DRUGS (1)
  1. FONDAPARINUX [Suspect]
     Active Substance: FONDAPARINUX
     Indication: CEREBROVASCULAR ACCIDENT
     Dosage: 2.5 MG, QD
     Route: 058

REACTIONS (1)
  - Intra-abdominal haematoma [Recovering/Resolving]

NARRATIVE: CASE EVENT DATE: 20171218
